FAERS Safety Report 25776564 (Version 1)
Quarter: 2025Q3

REPORT INFORMATION
  Report Type: Spontaneous
  Country: US (occurrence: US)
  Receive Date: 20250909
  Receipt Date: 20250909
  Transmission Date: 20251020
  Serious: No
  Sender: DOMPE FARMACEUTICI
  Company Number: US-FARMAPROD-202503-0733

PATIENT
  Sex: Male

DRUGS (18)
  1. OXERVATE [Suspect]
     Active Substance: CENEGERMIN-BKBJ
     Indication: Neurotrophic keratopathy
     Route: 047
     Dates: start: 20250225
  2. ARTIFICIAL TEARS [Concomitant]
  3. CALCIUM-MAGNESIUM-ZINC [Concomitant]
  4. POTASSIUM [Concomitant]
     Active Substance: POTASSIUM
  5. CHONDROITIN SULFATE (BOVINE)\GLUCOSAMINE SULFATE [Concomitant]
     Active Substance: CHONDROITIN SULFATE (BOVINE)\GLUCOSAMINE SULFATE
  6. VITAMIN D3 [Concomitant]
     Active Substance: CHOLECALCIFEROL
  7. MEN^S MULTIVITAMIN [Concomitant]
  8. NIACIN [Concomitant]
     Active Substance: NIACIN
  9. OMEGA-3 ACIDS [Concomitant]
     Active Substance: OMEGA-3 FATTY ACIDS
  10. COENZYME Q10 [Concomitant]
     Active Substance: DIETARY SUPPLEMENT\UBIDECARENONE
  11. ASPIRIN [Concomitant]
     Active Substance: ASPIRIN
  12. ALBUTEROL SULFATE [Concomitant]
     Active Substance: ALBUTEROL SULFATE
  13. LEXAPRO [Concomitant]
     Active Substance: ESCITALOPRAM OXALATE
  14. LIPITOR [Concomitant]
     Active Substance: ATORVASTATIN CALCIUM
  15. TOPAMAX [Concomitant]
     Active Substance: TOPIRAMATE
  16. CIALIS [Concomitant]
     Active Substance: TADALAFIL
  17. PREGABALIN [Concomitant]
     Active Substance: PREGABALIN
  18. DULOXETINE HYDROCHLORIDE [Concomitant]
     Active Substance: DULOXETINE HYDROCHLORIDE

REACTIONS (6)
  - Eye irritation [Unknown]
  - Eye pruritus [Unknown]
  - Dry eye [Unknown]
  - Photophobia [Unknown]
  - Eye pain [Unknown]
  - Periorbital pain [Unknown]
